FAERS Safety Report 6302281-6 (Version None)
Quarter: 2009Q3

REPORT INFORMATION
  Report Type: 
  Country: None (occurrence: None)
  Receive Date: 20090810
  Receipt Date: 20090730
  Transmission Date: 20100115
  Serious: Yes (Other)
  Sender: FDA-Public Use
  Company Number: BR-PFIZER INC-2009248921

PATIENT

DRUGS (5)
  1. CITALOR [Suspect]
     Indication: ANGINA PECTORIS
     Dosage: 10 MG, 1X/DAY
     Route: 048
  2. DILACORON [Concomitant]
     Dosage: UNK
  3. SUSTRATE [Concomitant]
     Dosage: UNK
  4. ZOLOFT [Concomitant]
  5. A.A.S. [Concomitant]
     Dosage: UNK

REACTIONS (2)
  - DRUG DISPENSING ERROR [None]
  - NEOPLASM MALIGNANT [None]
